FAERS Safety Report 5121681-3 (Version None)
Quarter: 2006Q4

REPORT INFORMATION
  Report Type: 
  Country: None (occurrence: None)
  Receive Date: 20061006
  Receipt Date: 20060912
  Transmission Date: 20070319
  Serious: Yes (Other)
  Sender: FDA-Public Use
  Company Number: S2006US16112

PATIENT
  Sex: Male

DRUGS (10)
  1. COREG [Suspect]
     Indication: DRUG USE FOR UNKNOWN INDICATION
     Route: 065
  2. DIGOXIN [Suspect]
     Indication: DRUG USE FOR UNKNOWN INDICATION
     Route: 065
  3. VYTORIN [Concomitant]
  4. EPLERENONE [Concomitant]
  5. FUROSEMIDE [Concomitant]
  6. ENALAPRIL MALEATE [Concomitant]
  7. POTASSIUM CHLORIDE [Concomitant]
  8. METFORMIN [Concomitant]
  9. ASPIRIN [Concomitant]
  10. IBUPROFEN [Concomitant]
     Dosage: 600MG AS REQUIRED

REACTIONS (2)
  - MYOCARDIAL INFARCTION [None]
  - VIRAL INFECTION [None]
